FAERS Safety Report 8454874-8 (Version None)
Quarter: 2012Q2

REPORT INFORMATION
  Report Type: 
  Country: None (occurrence: None)
  Receive Date: 20120614
  Receipt Date: 20120608
  Transmission Date: 20120825
  Serious: Yes (Hospitalization)
  Sender: FDA-Public Use
  Company Number: AUR-APL-2012-02588

PATIENT
  Age: 71 Year
  Sex: Male

DRUGS (7)
  1. SIMVASTATIN [Suspect]
     Indication: HYPERCHOLESTEROLAEMIA
     Dosage: 80 MG (80 MG, 1 IN 1 D), ORAL
     Route: 048
     Dates: start: 20120101, end: 20120502
  2. METFFORMIN HYDROCHLORIDE [Concomitant]
  3. CARVEDILOL [Concomitant]
  4. PERINDOPRIL ERBUMINE [Concomitant]
  5. ASPIRIN [Concomitant]
  6. CYANOCOBALAMIN (CYANOCOBALAMIN (CYANOCOBALAMIN) [Concomitant]
  7. GLIMEPIRIDE [Concomitant]

REACTIONS (4)
  - HYPERKALAEMIA [None]
  - BLOOD CREATININE INCREASED [None]
  - RHABDOMYOLYSIS [None]
  - ANURIA [None]
